FAERS Safety Report 25090225 (Version 1)
Quarter: 2025Q1

REPORT INFORMATION
  Report Type: Spontaneous
  Country: CH (occurrence: CH)
  Receive Date: 20250318
  Receipt Date: 20250318
  Transmission Date: 20250409
  Serious: Yes (Other)
  Sender: MYLAN
  Company Number: None

PATIENT
  Age: 39 Year
  Sex: Female

DRUGS (8)
  1. VENLAFAXINE HYDROCHLORIDE [Suspect]
     Active Substance: VENLAFAXINE HYDROCHLORIDE
     Indication: Generalised anxiety disorder
     Dosage: 75 MILLIGRAM, QD
  2. VENLAFAXINE HYDROCHLORIDE [Suspect]
     Active Substance: VENLAFAXINE HYDROCHLORIDE
     Indication: Agoraphobia
     Dosage: 75 MILLIGRAM, QD
     Route: 048
  3. VENLAFAXINE HYDROCHLORIDE [Suspect]
     Active Substance: VENLAFAXINE HYDROCHLORIDE
     Dosage: 75 MILLIGRAM, QD
     Route: 048
  4. VENLAFAXINE HYDROCHLORIDE [Suspect]
     Active Substance: VENLAFAXINE HYDROCHLORIDE
     Dosage: 75 MILLIGRAM, QD
  5. OXAZEPAM [Suspect]
     Active Substance: OXAZEPAM
     Indication: Generalised anxiety disorder
  6. OXAZEPAM [Suspect]
     Active Substance: OXAZEPAM
     Indication: Agoraphobia
     Route: 048
  7. OXAZEPAM [Suspect]
     Active Substance: OXAZEPAM
     Route: 048
  8. OXAZEPAM [Suspect]
     Active Substance: OXAZEPAM

REACTIONS (2)
  - Abortion spontaneous [Recovered/Resolved]
  - Exposure during pregnancy [Recovered/Resolved]

NARRATIVE: CASE EVENT DATE: 20250121
